FAERS Safety Report 22688288 (Version 8)
Quarter: 2025Q1

REPORT INFORMATION
  Report Type: Spontaneous
  Country: US (occurrence: US)
  Receive Date: 20230710
  Receipt Date: 20250103
  Transmission Date: 20250409
  Serious: No
  Sender: PFIZER
  Company Number: US-PFIZER INC-PV202300071824

PATIENT
  Age: 64 Year
  Sex: Female

DRUGS (1)
  1. PREMARIN [Suspect]
     Active Substance: ESTROGENS, CONJUGATED
     Route: 067

REACTIONS (7)
  - Mental disorder [Unknown]
  - Malaise [Unknown]
  - Palpitations [Unknown]
  - Agitation [Unknown]
  - Rhinorrhoea [Unknown]
  - Off label use [Unknown]
  - Product prescribing error [Unknown]
